FAERS Safety Report 10049438 (Version 1)
Quarter: 2014Q2

REPORT INFORMATION
  Report Type: Report from Study
  Country: CA (occurrence: CA)
  Receive Date: 20140401
  Receipt Date: 20140401
  Transmission Date: 20141212
  Serious: Yes (Disabling)
  Sender: FDA-Public Use
  Company Number: CA-JNJFOC-20140318286

PATIENT
  Age: 43 Year
  Sex: Female
  Weight: 92.99 kg

DRUGS (1)
  1. STELARA [Suspect]
     Indication: PSORIASIS
     Route: 058
     Dates: start: 20121204

REACTIONS (2)
  - Visual field defect [Not Recovered/Not Resolved]
  - Lower respiratory tract infection [Recovered/Resolved]
